FAERS Safety Report 17339155 (Version 1)
Quarter: 2020Q1

REPORT INFORMATION
  Report Type: Spontaneous
  Country: US (occurrence: US)
  Receive Date: 20200129
  Receipt Date: 20200129
  Transmission Date: 20200409
  Serious: No
  Sender: FDA-Public Use
  Company Number: US-SA-2020SA022007

PATIENT
  Weight: 45 kg

DRUGS (1)
  1. DUPIXENT [Suspect]
     Active Substance: DUPILUMAB
     Indication: DERMATITIS ATOPIC
     Dosage: 200 MG, QOW
     Dates: start: 20191213

REACTIONS (6)
  - Eye swelling [Unknown]
  - Ocular hyperaemia [Unknown]
  - Scleral hyperaemia [Unknown]
  - Eye pruritus [Unknown]
  - Lacrimation increased [Unknown]
  - Condition aggravated [Unknown]
